FAERS Safety Report 12601589 (Version 1)
Quarter: 2016Q3

REPORT INFORMATION
  Report Type: Spontaneous
  Country: US (occurrence: None)
  Receive Date: 20160727
  Receipt Date: 20160727
  Transmission Date: 20161109
  Serious: No
  Sender: FDA-Public Use
  Company Number: None

PATIENT
  Sex: Female
  Weight: 59.42 kg

DRUGS (5)
  1. EPZICOM [Concomitant]
     Active Substance: ABACAVIR SULFATE\LAMIVUDINE
  2. RADIOTHERAPY [Concomitant]
     Active Substance: RADIATION THERAPY
  3. CAPECITABINE 1000MG MYLAN [Suspect]
     Active Substance: CAPECITABINE
     Indication: RECTAL CANCER
     Dosage: 1000MG BID X 14 DIAS PO
     Route: 048
     Dates: start: 20160707
  4. REYATAZ [Concomitant]
     Active Substance: ATAZANAVIR SULFATE
  5. OXALIPLATIN. [Concomitant]
     Active Substance: OXALIPLATIN

REACTIONS (3)
  - Abdominal discomfort [None]
  - Rectal haemorrhage [None]
  - Diarrhoea [None]
